FAERS Safety Report 11951234 (Version 1)
Quarter: 2016Q1

REPORT INFORMATION
  Report Type: Spontaneous
  Country: US (occurrence: None)
  Receive Date: 20160122
  Receipt Date: 20160122
  Transmission Date: 20160526
  Serious: Yes (Hospitalization)
  Sender: FDA-Public Use
  Company Number: None

PATIENT
  Age: 72 Year
  Sex: Male

DRUGS (6)
  1. PREDNISONE. [Concomitant]
     Active Substance: PREDNISONE
  2. METOPROLOL. [Concomitant]
     Active Substance: METOPROLOL
  3. DILTIAZEM [Concomitant]
     Active Substance: DILTIAZEM
  4. ZYTIGA [Suspect]
     Active Substance: ABIRATERONE ACETATE
     Indication: PROSTATE CANCER
     Dosage: 4 TABS
     Route: 048
     Dates: start: 201507
  5. ATORVASTATIN [Concomitant]
     Active Substance: ATORVASTATIN
  6. ALLOPURINOL. [Concomitant]
     Active Substance: ALLOPURINOL

REACTIONS (2)
  - Unevaluable event [None]
  - Hospitalisation [None]
